FAERS Safety Report 25083569 (Version 2)
Quarter: 2025Q2

REPORT INFORMATION
  Report Type: Report from Study
  Country: US (occurrence: US)
  Receive Date: 20250317
  Receipt Date: 20250506
  Transmission Date: 20250716
  Serious: No
  Sender: SUNOVION
  Company Number: US-SUMITOMO PHARMA SWITZERLAND GMBH-2025SPA002029

PATIENT

DRUGS (4)
  1. ORGOVYX [Suspect]
     Active Substance: RELUGOLIX
     Indication: Prostate cancer
     Dosage: 360 MG, SINGLE
     Route: 048
     Dates: start: 20241223, end: 20241223
  2. ORGOVYX [Suspect]
     Active Substance: RELUGOLIX
     Dosage: 120 MG, QD
     Route: 048
     Dates: start: 20241224
  3. ATORVASTATIN CALCIUM [Concomitant]
     Active Substance: ATORVASTATIN CALCIUM
     Route: 048
  4. STIMULANT LAXATIVE PLUS STOOL SOFTENER [Concomitant]
     Active Substance: DOCUSATE SODIUM\SENNOSIDES
     Route: 065

REACTIONS (5)
  - Muscle spasms [Unknown]
  - Urine output decreased [Unknown]
  - Hot flush [Unknown]
  - Diarrhoea [Unknown]
  - Constipation [Unknown]
